FAERS Safety Report 22039479 (Version 1)
Quarter: 2023Q1

REPORT INFORMATION
  Report Type: Spontaneous
  Country: US (occurrence: US)
  Receive Date: 20230227
  Receipt Date: 20230227
  Transmission Date: 20230418
  Serious: Yes (Death, Other)
  Sender: FDA-Public Use
  Company Number: US-ASTELLAS-2023US004299

PATIENT
  Age: 74 Year
  Sex: Male

DRUGS (9)
  1. PADCEV [Suspect]
     Active Substance: ENFORTUMAB VEDOTIN-EJFV
     Indication: Bladder cancer
     Dosage: 1.25 MG/KG, CYCLIC (ON DAYS 1, 8 AND 15 EVERY 28 DAYS)
     Route: 065
     Dates: start: 20210817
  2. PADCEV [Suspect]
     Active Substance: ENFORTUMAB VEDOTIN-EJFV
     Dosage: 1 MG/KG, CYCLIC (ON DAYS 1, 8 AND 15 EVERY 28 DAYS)
     Route: 065
     Dates: start: 20211207
  3. PADCEV [Suspect]
     Active Substance: ENFORTUMAB VEDOTIN-EJFV
     Dosage: 0.75 MG/KG, CYCLIC (ON DAYS 1, 8 AND 15 EVERY 28 DAYS)
     Route: 065
     Dates: start: 20220201
  4. PADCEV [Suspect]
     Active Substance: ENFORTUMAB VEDOTIN-EJFV
     Dosage: UNK UNK, UNKNOWN FREQ. (TWO VIALS OF 30 MG)
     Route: 065
     Dates: start: 20220301
  5. PADCEV [Suspect]
     Active Substance: ENFORTUMAB VEDOTIN-EJFV
     Dosage: UNK UNK, UNKNOWN FREQ. (TWO VIALS OF 30 MG)
     Route: 065
     Dates: start: 20220308
  6. PADCEV [Suspect]
     Active Substance: ENFORTUMAB VEDOTIN-EJFV
     Dosage: UNK UNK, UNKNOWN FREQ. (TWO VIALS OF 30 MG)
     Route: 065
     Dates: start: 20220315
  7. PADCEV [Suspect]
     Active Substance: ENFORTUMAB VEDOTIN-EJFV
     Dosage: UNK UNK, UNKNOWN FREQ. (TWO VIALS OF 30 MG)
     Route: 065
     Dates: start: 20220329
  8. PADCEV [Suspect]
     Active Substance: ENFORTUMAB VEDOTIN-EJFV
     Dosage: UNK UNK, UNKNOWN FREQ. (TWO VIALS OF 30 MG)
     Route: 065
     Dates: start: 20220405
  9. PADCEV [Suspect]
     Active Substance: ENFORTUMAB VEDOTIN-EJFV
     Dosage: UNK UNK, UNKNOWN FREQ. (THREE VIALS OF 20MG)
     Route: 065
     Dates: start: 20220412, end: 20220503

REACTIONS (2)
  - Death [Fatal]
  - Dysgeusia [Not Recovered/Not Resolved]

NARRATIVE: CASE EVENT DATE: 20220301
